FAERS Safety Report 6983959-8 (Version None)
Quarter: 2010Q3

REPORT INFORMATION
  Report Type: 
  Country: None (occurrence: None)
  Receive Date: 20100914
  Receipt Date: 20090428
  Transmission Date: 20110219
  Serious: No
  Sender: FDA-Public Use
  Company Number: US-WYE-H09146309

PATIENT
  Sex: Male

DRUGS (1)
  1. TYGACIL [Suspect]
     Indication: ATYPICAL MYCOBACTERIAL INFECTION
     Route: 042
     Dates: start: 20090422

REACTIONS (2)
  - NAUSEA [None]
  - RETCHING [None]
